FAERS Safety Report 6696567-3 (Version None)
Quarter: 2010Q2

REPORT INFORMATION
  Report Type: 
  Country: None (occurrence: None)
  Receive Date: 20100426
  Receipt Date: 20100323
  Transmission Date: 20101027
  Serious: Yes (Other)
  Sender: FDA-Public Use
  Company Number: B0594992A

PATIENT
  Sex: Male
  Weight: 80 kg

DRUGS (1)
  1. NIQUITIN CQ [Suspect]
     Dosage: 1PAT PER DAY
     Route: 062
     Dates: start: 20090904, end: 20090905

REACTIONS (7)
  - APPLICATION SITE BURN [None]
  - APPLICATION SITE PAIN [None]
  - PEMPHIGUS [None]
  - PRODUCT QUALITY ISSUE [None]
  - PRURITUS [None]
  - RASH [None]
  - SKIN ULCER [None]
